FAERS Safety Report 14178944 (Version 3)
Quarter: 2017Q4

REPORT INFORMATION
  Report Type: Report from Study
  Country: None (occurrence: AU)
  Receive Date: 20171110
  Receipt Date: 20171227
  Transmission Date: 20180321
  Serious: Yes (Hospitalization, Other)
  Sender: FDA-Public Use
  Company Number: AU-ABBVIE-17S-008-2159568-00

PATIENT
  Age: 58 Year
  Sex: Male

DRUGS (7)
  1. CLOZAPINE. [Suspect]
     Active Substance: CLOZAPINE
     Indication: SCHIZOPHRENIA
     Dosage: UNK
     Route: 048
     Dates: start: 20130318, end: 20171010
  2. CHLORPROMAZINE. [Suspect]
     Active Substance: CHLORPROMAZINE
     Indication: PRODUCT USED FOR UNKNOWN INDICATION
     Dosage: UNK
     Route: 065
     Dates: start: 2017
  3. VALPROIC ACID. [Suspect]
     Active Substance: VALPROIC ACID
     Indication: PRODUCT USED FOR UNKNOWN INDICATION
     Dosage: 1000 MG, BID
     Route: 065
     Dates: end: 2017
  4. OLANZAPINE. [Suspect]
     Active Substance: OLANZAPINE
     Indication: AGITATION
     Dosage: 5 MG, PRN
     Route: 065
  5. ARIPIPRAZOLE. [Suspect]
     Active Substance: ARIPIPRAZOLE
     Indication: PRODUCT USED FOR UNKNOWN INDICATION
     Dosage: UNK
     Route: 065
     Dates: start: 2017
  6. HALOPERIDOL. [Suspect]
     Active Substance: HALOPERIDOL
     Indication: PRODUCT USED FOR UNKNOWN INDICATION
     Dosage: 150 MG, 4XW
     Route: 030
  7. HALOPERIDOL. [Suspect]
     Active Substance: HALOPERIDOL
     Dosage: UNK
     Route: 030
     Dates: start: 2017

REACTIONS (13)
  - Neutropenia [Recovered/Resolved]
  - Diarrhoea [Unknown]
  - Hallucination, auditory [Not Recovered/Not Resolved]
  - Scrotal haematoma [Unknown]
  - Infection [Unknown]
  - Schizophrenia [Recovering/Resolving]
  - Mental impairment [Not Recovered/Not Resolved]
  - Malaise [Unknown]
  - White blood cell count decreased [Recovered/Resolved]
  - Constipation [Unknown]
  - Aggression [Unknown]
  - Food poisoning [Unknown]
  - Wound infection [Unknown]

NARRATIVE: CASE EVENT DATE: 2017
